FAERS Safety Report 5573347-3 (Version None)
Quarter: 2007Q4

REPORT INFORMATION
  Report Type: 
  Country: None (occurrence: None)
  Receive Date: 20071220
  Receipt Date: 20071220
  Transmission Date: 20080405
  Serious: Yes (Other)
  Sender: FDA-Public Use
  Company Number: None

PATIENT
  Age: 59 Year
  Sex: Female
  Weight: 67.3 kg

DRUGS (2)
  1. NOXAFIL [Suspect]
     Indication: COCCIDIOIDOMYCOSIS
     Dosage: 200 MG/5 ML Q8H PO
     Route: 048
     Dates: start: 20071217, end: 20071218
  2. NOXAFIL [Suspect]
     Indication: PNEUMONIA FUNGAL
     Dosage: 200 MG/5 ML Q8H PO
     Route: 048
     Dates: start: 20071217, end: 20071218

REACTIONS (2)
  - INCORRECT DOSE ADMINISTERED [None]
  - MEDICATION ERROR [None]
